FAERS Safety Report 17697057 (Version 1)
Quarter: 2020Q2

REPORT INFORMATION
  Report Type: Spontaneous
  Country: GB (occurrence: GB)
  Receive Date: 20200423
  Receipt Date: 20200423
  Transmission Date: 20200714
  Serious: Yes (Hospitalization)
  Sender: FDA-Public Use
  Company Number: GB-009507513-2004GBR006571

PATIENT
  Age: 76 Year

DRUGS (11)
  1. PERINDOPRIL [Concomitant]
     Active Substance: PERINDOPRIL
     Dosage: 2 MILLIGRAM, QAM
  2. PIOGLITAZONE. [Concomitant]
     Active Substance: PIOGLITAZONE
     Dosage: 30 MILLIGRAM, QD
  3. METFORMIN [Concomitant]
     Active Substance: METFORMIN HYDROCHLORIDE
     Dosage: 3 GRAM, QD
  4. LANSOPRAZOLE. [Concomitant]
     Active Substance: LANSOPRAZOLE
     Dosage: 30 MILLIGRAM, QD
  5. TAMSULOSIN HYDROCHLORIDE. [Concomitant]
     Active Substance: TAMSULOSIN HYDROCHLORIDE
     Dosage: 400 MICROGRAM, QD
  6. OLANZAPINE. [Concomitant]
     Active Substance: OLANZAPINE
     Dosage: 20 MILLIGRAM, QPM
  7. AMLODIPINE [Concomitant]
     Active Substance: AMLODIPINE BESYLATE
     Dosage: 5 MILLIGRAM, QD
  8. LINAGLIPTIN [Concomitant]
     Active Substance: LINAGLIPTIN
     Dosage: 5 MILLIGRAM, QAM
  9. SIMVASTATIN. [Suspect]
     Active Substance: SIMVASTATIN
     Dosage: 40 MILLIGRAM, QPM
  10. THIAMINE. [Concomitant]
     Active Substance: THIAMINE
     Dosage: 200 MILLIGRAM, QD (ALSO REPORTED AS MORNING AND TEA )
  11. ADCAL-D3 [Concomitant]
     Active Substance: CALCIUM CARBONATE\CHOLECALCIFEROL
     Dosage: 4 DOSAGE FORM, QD (ALSO REPORTED AS 700/200, MORNING AND TEA)

REACTIONS (1)
  - Pain in extremity [Unknown]
